FAERS Safety Report 9477075 (Version 2)
Quarter: 2013Q4

REPORT INFORMATION
  Report Type: Spontaneous
  Country: US (occurrence: US)
  Receive Date: 20130826
  Receipt Date: 20131121
  Transmission Date: 20140711
  Serious: Yes (Hospitalization)
  Sender: FDA-Public Use
  Company Number: US-B.I. PHARMACEUTICALS,INC./RIDGEFIELD-2013-BI-25543BP

PATIENT
  Age: 50 Year
  Sex: Female
  Weight: 79 kg

DRUGS (8)
  1. MIRAPEX [Suspect]
     Indication: RESTLESS LEGS SYNDROME
     Dosage: 1 MG
     Route: 048
     Dates: start: 2010
  2. NEXIUM [Concomitant]
     Indication: GASTROOESOPHAGEAL REFLUX DISEASE
     Dosage: 40 MG
     Route: 048
     Dates: start: 2012
  3. SYNTHROID [Concomitant]
     Indication: HYPOTHYROIDISM
     Dosage: 150 MG
     Route: 048
     Dates: start: 1977
  4. NORTRIPTYLINE [Concomitant]
     Indication: MIGRAINE
     Dosage: 50 MG
     Route: 048
     Dates: start: 2003
  5. PLAQUENIL [Concomitant]
     Indication: ARTHRITIS
     Dosage: 400 MG
     Route: 048
     Dates: start: 2009
  6. CYMBALTA [Concomitant]
     Indication: ARTHRITIS
     Dosage: 60 MG
     Route: 048
     Dates: start: 201304
  7. ESTRADIOL [Concomitant]
     Indication: HYSTERECTOMY
     Dosage: 2 MG
     Route: 048
     Dates: start: 2000
  8. FLOVENT [Concomitant]
     Indication: ASTHMA
     Dosage: 500 MG
     Route: 055
     Dates: start: 2011

REACTIONS (5)
  - Fall [Recovered/Resolved]
  - Tibia fracture [Not Recovered/Not Resolved]
  - Fibula fracture [Not Recovered/Not Resolved]
  - Muscle spasms [Not Recovered/Not Resolved]
  - Oedema peripheral [Not Recovered/Not Resolved]
